FAERS Safety Report 7865192-0 (Version None)
Quarter: 2011Q4

REPORT INFORMATION
  Report Type: 
  Country: None (occurrence: None)
  Receive Date: 20111028
  Receipt Date: 20101028
  Transmission Date: 20120403
  Serious: No
  Sender: FDA-Public Use
  Company Number: US-GLAXOSMITHKLINE-A0889396A

PATIENT
  Age: 72 Year
  Sex: Male
  Weight: 82.7 kg

DRUGS (6)
  1. BLOOD PRESSURE MEDICATION [Concomitant]
     Indication: HYPERTENSION
  2. SPIRIVA [Concomitant]
     Indication: PRODUCT USED FOR UNKNOWN INDICATION
     Dosage: 1PUFF PER DAY
  3. ANTI-CHOLESTEROL MEDICATION [Concomitant]
  4. ADVAIR DISKUS 100/50 [Suspect]
     Indication: EMPHYSEMA
     Dosage: 1PUFF TWICE PER DAY
     Route: 055
     Dates: start: 20100928, end: 20100930
  5. VERAPAMIL [Concomitant]
  6. EYE DROPS [Concomitant]
     Indication: GLAUCOMA
     Route: 047

REACTIONS (2)
  - DYSPNOEA [None]
  - DIZZINESS [None]
